FAERS Safety Report 24661924 (Version 1)
Quarter: 2024Q4

REPORT INFORMATION
  Report Type: Spontaneous
  Country: US (occurrence: US)
  Receive Date: 20241125
  Receipt Date: 20241125
  Transmission Date: 20250115
  Serious: Yes (Hospitalization, Other)
  Sender: MERCK
  Company Number: US-009507513-2411USA008493

PATIENT
  Age: 71 Year
  Sex: Female

DRUGS (2)
  1. KEYTRUDA [Suspect]
     Active Substance: PEMBROLIZUMAB
     Indication: Endometrial cancer recurrent
     Dosage: 200 MILLIGRAM, Q3W
  2. KEYTRUDA [Suspect]
     Active Substance: PEMBROLIZUMAB
     Indication: Metastases to peritoneum

REACTIONS (1)
  - Tubulointerstitial nephritis [Recovered/Resolved]
